FAERS Safety Report 21580585 (Version 1)
Quarter: 2022Q4

REPORT INFORMATION
  Report Type: Spontaneous
  Country: US (occurrence: US)
  Receive Date: 20221111
  Receipt Date: 20221111
  Transmission Date: 20230113
  Serious: No
  Sender: FDA-Public Use
  Company Number: US-SA-SAC20221110000815

PATIENT
  Sex: Male

DRUGS (2)
  1. KEVZARA [Suspect]
     Active Substance: SARILUMAB
     Indication: Rheumatoid arthritis
     Dosage: 200MG, QOW
     Route: 058
     Dates: start: 202206
  2. OLUMIANT [Concomitant]
     Active Substance: BARICITINIB
     Dosage: UNK

REACTIONS (3)
  - Arthralgia [Not Recovered/Not Resolved]
  - Joint swelling [Not Recovered/Not Resolved]
  - Inflammation [Not Recovered/Not Resolved]
